FAERS Safety Report 7468301-0 (Version None)
Quarter: 2011Q2

REPORT INFORMATION
  Report Type: 
  Country: None (occurrence: None)
  Receive Date: 20110509
  Receipt Date: 20101102
  Transmission Date: 20111010
  Serious: Yes (Other)
  Sender: FDA-Public Use
  Company Number: PHHY2010FR90989

PATIENT

DRUGS (1)
  1. ZOMETA [Suspect]
     Indication: METASTASES TO BONE
     Route: 042

REACTIONS (7)
  - NERVOUS SYSTEM DISORDER [None]
  - LOSS OF PROPRIOCEPTION [None]
  - WEIGHT DECREASED [None]
  - ORAL FUNGAL INFECTION [None]
  - EYELID PTOSIS [None]
  - ASTHENIA [None]
  - MOBILITY DECREASED [None]
